FAERS Safety Report 9495040 (Version 1)
Quarter: 2013Q3

REPORT INFORMATION
  Report Type: Spontaneous
  Country: DE (occurrence: DE)
  Receive Date: 20130903
  Receipt Date: 20130903
  Transmission Date: 20140515
  Serious: Yes (Hospitalization)
  Sender: FDA-Public Use
  Company Number: DE-B.I. PHARMACEUTICALS,INC./RIDGEFIELD-2013-BI-26832DE

PATIENT
  Age: 81 Year
  Sex: Female

DRUGS (3)
  1. PRADAXA [Suspect]
     Indication: PRODUCT USED FOR UNKNOWN INDICATION
     Dates: start: 201210
  2. ASS [Concomitant]
     Indication: CORONARY ARTERY DISEASE
     Dosage: 100 MG
     Dates: start: 201210
  3. PLAVIX [Concomitant]
     Dosage: 75 MG
     Dates: start: 201210

REACTIONS (1)
  - Diverticulum intestinal haemorrhagic [Recovered/Resolved]
